FAERS Safety Report 9593641 (Version 2)
Quarter: 2013Q4

REPORT INFORMATION
  Report Type: Spontaneous
  Country: US (occurrence: US)
  Receive Date: 20131004
  Receipt Date: 20131004
  Transmission Date: 20140711
  Serious: No
  Sender: FDA-Public Use
  Company Number: US-PURDUE-USA-2012-0087654

PATIENT
  Age: 42 Year
  Sex: Female
  Weight: 78.46 kg

DRUGS (1)
  1. BUTRANS [Suspect]
     Indication: PRODUCT USED FOR UNKNOWN INDICATION
     Dosage: 10 MCG/HR, UNK
     Route: 062
     Dates: start: 20120220, end: 20120317

REACTIONS (7)
  - Drug effect increased [Unknown]
  - Nausea [Unknown]
  - Skin irritation [Unknown]
  - Application site rash [Recovered/Resolved]
  - Dizziness [Unknown]
  - Application site vesicles [Recovered/Resolved]
  - Somnolence [Unknown]
